FAERS Safety Report 13794181 (Version 9)
Quarter: 2018Q3

REPORT INFORMATION
  Report Type: Report from Study
  Country: FR (occurrence: FR)
  Receive Date: 20170726
  Receipt Date: 20180828
  Transmission Date: 20181010
  Serious: Yes (Death, Hospitalization, Other)
  Sender: FDA-Public Use
  Company Number: FR-BRISTOL-MYERS SQUIBB COMPANY-BMS-2017-051154

PATIENT
  Age: 81 Year
  Sex: Male

DRUGS (2)
  1. NIVOLUMAB [Suspect]
     Active Substance: NIVOLUMAB
     Indication: LUNG NEOPLASM MALIGNANT
     Dosage: 220 MG, Q2WK
     Route: 042
     Dates: start: 20170512
  2. NIVOLUMAB [Suspect]
     Active Substance: NIVOLUMAB
     Indication: PRODUCT USED FOR UNKNOWN INDICATION
     Dosage: 225 MG, Q2WK
     Route: 042
     Dates: start: 20170623

REACTIONS (6)
  - Gallbladder disorder [Not Recovered/Not Resolved]
  - Renal failure [Fatal]
  - Pneumonia [Unknown]
  - Hyperleukocytosis [Fatal]
  - Anaemia [Unknown]
  - Pleurisy [Fatal]

NARRATIVE: CASE EVENT DATE: 20170513
